FAERS Safety Report 24920142 (Version 3)
Quarter: 2025Q1

REPORT INFORMATION
  Report Type: Spontaneous
  Country: US (occurrence: US)
  Receive Date: 20250204
  Receipt Date: 20250225
  Transmission Date: 20250409
  Serious: Yes (Other)
  Sender: BRISTOL-MYERS SQUIBB COMPANY
  Company Number: US-BRISTOL-MYERS SQUIBB COMPANY-2025-013131

PATIENT
  Age: 89 Year
  Sex: Female
  Weight: 50.8 kg

DRUGS (33)
  1. POMALYST [Suspect]
     Active Substance: POMALIDOMIDE
     Indication: Plasma cell myeloma
     Dosage: ONCE DAILY FOR 21 DAYS ON THEN 7 DAYS OFF
     Route: 048
  2. ZINC [Concomitant]
     Active Substance: ZINC
     Route: 048
  3. VITAMIN D3 [Concomitant]
     Active Substance: CHOLECALCIFEROL
     Route: 048
  4. CHOLECALCIFEROL [Concomitant]
     Active Substance: CHOLECALCIFEROL
     Route: 048
  5. VITAMIN C [Concomitant]
     Active Substance: ASCORBIC ACID
     Route: 048
  6. VENOFER [Concomitant]
     Active Substance: IRON SUCROSE
     Route: 042
  7. TYLENOL 8HR [Concomitant]
     Active Substance: ACETAMINOPHEN
     Route: 048
  8. TRAMADOL HCL [Concomitant]
     Active Substance: TRAMADOL HYDROCHLORIDE
     Route: 048
  9. SENNA LEAF [Concomitant]
     Active Substance: SENNA LEAF
     Route: 048
  10. ROSUVASTATIN CALCIUM [Concomitant]
     Active Substance: ROSUVASTATIN CALCIUM
     Route: 048
  11. DIETARY SUPPLEMENT [Concomitant]
     Active Substance: DIETARY SUPPLEMENT
     Route: 048
  12. METAMUCIL [Concomitant]
     Active Substance: PLANTAGO SEED
     Route: 048
  13. MEGESTROL ACETATE [Concomitant]
     Active Substance: MEGESTROL ACETATE
     Route: 048
  14. LIDOCAINE\PRILOCAINE [Concomitant]
     Active Substance: LIDOCAINE\PRILOCAINE
  15. LEVOTHYROXINE SODIUM [Concomitant]
     Active Substance: LEVOTHYROXINE SODIUM
     Route: 048
  16. KLOR-CON M15 [Concomitant]
     Route: 048
  17. ACETAMINOPHEN\HYDROCODONE [Concomitant]
     Active Substance: ACETAMINOPHEN\HYDROCODONE
     Route: 048
  18. HEMADY [Concomitant]
     Active Substance: DEXAMETHASONE
     Route: 048
  19. GABAPENTIN [Concomitant]
     Active Substance: GABAPENTIN
     Route: 048
  20. FUROSEMIDE [Concomitant]
     Active Substance: FUROSEMIDE
     Route: 048
  21. FISH OIL [Concomitant]
     Active Substance: FISH OIL
     Route: 048
  22. FAMOTIDINE [Concomitant]
     Active Substance: FAMOTIDINE
     Route: 048
  23. GLUCOSAMINE CHONDROITIN [CHONDROITIN SULFATE;GLUCOSAMINE SULFATE] [Concomitant]
     Route: 048
  24. DRONABINOL [Concomitant]
     Active Substance: DRONABINOL
     Route: 048
  25. DIPHENHYDRAMINE HYDROCHLORIDE [Concomitant]
     Active Substance: DIPHENHYDRAMINE HYDROCHLORIDE
     Route: 048
  26. DEXAMETHASONE [Concomitant]
     Active Substance: DEXAMETHASONE
     Route: 048
  27. CYANOCOBALAMIN [Concomitant]
     Active Substance: CYANOCOBALAMIN
  28. COLACE [Concomitant]
     Active Substance: DOCUSATE SODIUM
     Route: 048
  29. CLINDAMYCIN HYDROCHLORIDE [Concomitant]
     Active Substance: CLINDAMYCIN HYDROCHLORIDE
     Route: 048
  30. CETIRIZINE HCL [Concomitant]
     Active Substance: CETIRIZINE HYDROCHLORIDE
     Route: 048
  31. CEPHALEXIN [Concomitant]
     Active Substance: CEPHALEXIN
     Route: 048
  32. ASPIRIN [Concomitant]
     Active Substance: ASPIRIN
     Route: 048
  33. ACETAMINOPHEN [Concomitant]
     Active Substance: ACETAMINOPHEN
     Route: 048

REACTIONS (2)
  - Internal haemorrhage [Unknown]
  - Upper respiratory tract infection [Unknown]
